FAERS Safety Report 8410789-2 (Version None)
Quarter: 2012Q2

REPORT INFORMATION
  Report Type: 
  Country: None (occurrence: None)
  Receive Date: 20120605
  Receipt Date: 20120524
  Transmission Date: 20120825
  Serious: Yes (Death)
  Sender: FDA-Public Use
  Company Number: US-ASTELLAS-2012US003415

PATIENT
  Sex: Male
  Weight: 68 kg

DRUGS (13)
  1. HYDROCODONE [Concomitant]
     Indication: PAIN
     Dosage: 5/325 ELIXIR 1 IN 4 HRS
     Route: 048
  2. BIAXIN XL [Concomitant]
     Indication: URINARY TRACT INFECTION
     Dosage: 1000 MG, UID/QD
     Route: 048
  3. LOMOTIL [Concomitant]
     Indication: DIARRHOEA
     Dosage: 25 MG, Q 4HRS
     Route: 048
  4. TARCEVA [Suspect]
     Indication: HEAD AND NECK CANCER STAGE IV
     Dosage: 150 MG, UID/QD
     Route: 048
     Dates: start: 20110701
  5. DURAGESIC-100 [Concomitant]
     Indication: PAIN
     Dosage: 150 UG, Q3D
     Route: 062
  6. PHENERGAN [Concomitant]
     Indication: NAUSEA
     Dosage: 25 MG, Q6 HOURS
     Route: 048
  7. KEPPRA [Concomitant]
     Indication: CONVULSION
     Dosage: 750 MG, Q12 HOURS
     Route: 048
  8. PREDNISONE [Concomitant]
     Indication: FACE OEDEMA
     Dosage: 15 MG, UID/QD
     Route: 048
  9. BACTRIM DS [Concomitant]
     Indication: BACTERAEMIA
     Dosage: 1000 MG, UID/QD
     Route: 048
  10. NEBIVOLOL HYDROCHLORIDE [Concomitant]
     Indication: PRODUCT USED FOR UNKNOWN INDICATION
     Dosage: 5 MG, UID/QD
     Route: 048
  11. MIRACLE MOUTHWASH [Concomitant]
     Indication: MUCOSAL INFLAMMATION
     Dosage: 1 DF, PRN
     Route: 048
  12. NYSTATIN [Concomitant]
     Indication: MUCOSAL INFLAMMATION
     Dosage: 1 DF, UID/QD
     Route: 048
  13. COUMADIN [Concomitant]
     Indication: CORONARY ARTERY BYPASS
     Dosage: 5 MG, UNKNOWN/D
     Route: 048

REACTIONS (2)
  - TONGUE CARCINOMA STAGE IV [None]
  - OFF LABEL USE [None]
